FAERS Safety Report 17561910 (Version 1)
Quarter: 2020Q1

REPORT INFORMATION
  Report Type: Spontaneous
  Country: DK (occurrence: DK)
  Receive Date: 20200319
  Receipt Date: 20200319
  Transmission Date: 20200409
  Serious: Yes (Death, Hospitalization)
  Sender: FDA-Public Use
  Company Number: DK-TEVA-2020-DK-1204236

PATIENT
  Age: 63 Year
  Sex: Male

DRUGS (5)
  1. RIBAVIRIN. [Suspect]
     Active Substance: RIBAVIRIN
     Indication: HEPATITIS C
     Dosage: STRENGTH: UNKNOWN?DOSAGE: UNKNOWN
     Route: 065
     Dates: start: 2012
  2. METHADONE [Concomitant]
     Active Substance: METHADONE HYDROCHLORIDE
     Indication: DRUG DEPENDENCE
     Dosage: STRENGTH: UNKNOWN?DOSAGE: UNKNOWN
     Route: 048
  3. SIMEPREVIR [Concomitant]
     Active Substance: SIMEPREVIR
     Indication: HEPATITIS C
     Dosage: STRENGTH: UNKNOWN?DOSAGE: UNKNOWN
  4. SOFOSBUVIR [Concomitant]
     Active Substance: SOFOSBUVIR
     Indication: HEPATITIS C
     Dosage: STRENGTH: UNKNOWN?DOSAGE: UNKNOWN
  5. TELAPREVIR [Concomitant]
     Active Substance: TELAPREVIR
     Indication: HEPATITIS C
     Dosage: STRENGTH: 375 MG ?DOSAGE: UNKNOWN
     Route: 048
     Dates: start: 2012

REACTIONS (2)
  - Dyspnoea [Fatal]
  - Pulmonary fibrosis [Fatal]

NARRATIVE: CASE EVENT DATE: 201807
